FAERS Safety Report 7826132-3 (Version None)
Quarter: 2011Q4

REPORT INFORMATION
  Report Type: 
  Country: None (occurrence: None)
  Receive Date: 20111019
  Receipt Date: 20111013
  Transmission Date: 20120403
  Serious: Yes (Death, Life-Threatening, Hospitalization, Other)
  Sender: FDA-Public Use
  Company Number: JP-CELGENEUS-TAJPN-10-0724

PATIENT
  Sex: Female
  Weight: 42 kg

DRUGS (9)
  1. LANSOPRAZOLE [Concomitant]
     Route: 048
     Dates: start: 20100927, end: 20110130
  2. GEMCITABINE HYDROCHLORIDE [Suspect]
     Indication: BREAST CANCER METASTATIC
     Route: 041
     Dates: start: 20101001, end: 20101125
  3. MAGMITT [Concomitant]
     Route: 048
     Dates: start: 20100927, end: 20110130
  4. MEDROXYPROGESTERONE ACETATE [Concomitant]
     Indication: BREAST CANCER METASTATIC
     Dosage: 800 MILLIGRAM
     Route: 048
     Dates: start: 20100701, end: 20110130
  5. ABRAXANE [Suspect]
     Indication: BREAST CANCER METASTATIC
     Dosage: 370 MILLIGRAM
     Route: 041
     Dates: start: 20101207, end: 20101207
  6. ABRAXANE [Suspect]
     Dosage: 370 MILLIGRAM
     Route: 041
     Dates: start: 20110111, end: 20110111
  7. PREDNISOLONE [Concomitant]
     Route: 048
     Dates: start: 20100927, end: 20110130
  8. OXYGEN [Concomitant]
     Dosage: 5 LITERS
     Route: 055
     Dates: start: 20101211
  9. OXYGEN [Concomitant]
     Indication: OXYGEN SATURATION DECREASED
     Dosage: 10 LITERS
     Route: 055
     Dates: start: 20101210

REACTIONS (2)
  - BREAST CANCER METASTATIC [None]
  - INTERSTITIAL LUNG DISEASE [None]
